FAERS Safety Report 19890181 (Version 3)
Quarter: 2021Q4

REPORT INFORMATION
  Report Type: Spontaneous
  Country: DE (occurrence: DE)
  Receive Date: 20210928
  Receipt Date: 20211026
  Transmission Date: 20220303
  Serious: Yes (Life-Threatening, Hospitalization, Other)
  Sender: FDA-Public Use
  Company Number: DE-002147023-NVSC2021DE105209

PATIENT
  Sex: Male

DRUGS (12)
  1. DEXAMETHASONE [Suspect]
     Active Substance: DEXAMETHASONE
     Indication: Pancytopenia
     Dosage: UNK
     Route: 065
  2. DEXAMETHASONE [Suspect]
     Active Substance: DEXAMETHASONE
     Indication: Condition aggravated
  3. DEXAMETHASONE [Suspect]
     Active Substance: DEXAMETHASONE
     Indication: Ascites
  4. DEXAMETHASONE [Suspect]
     Active Substance: DEXAMETHASONE
     Indication: Hepatosplenomegaly
  5. DEXAMETHASONE [Suspect]
     Active Substance: DEXAMETHASONE
     Indication: Pleural effusion
  6. RITUXIMAB [Suspect]
     Active Substance: RITUXIMAB
     Indication: Pleural effusion
     Dosage: UNK
     Route: 065
     Dates: start: 202001, end: 202003
  7. RITUXIMAB [Suspect]
     Active Substance: RITUXIMAB
     Indication: Hepatosplenomegaly
  8. RITUXIMAB [Suspect]
     Active Substance: RITUXIMAB
     Indication: Condition aggravated
  9. RITUXIMAB [Suspect]
     Active Substance: RITUXIMAB
     Indication: Ascites
  10. RITUXIMAB [Suspect]
     Active Substance: RITUXIMAB
     Indication: Pancytopenia
  11. RITUXIMAB [Suspect]
     Active Substance: RITUXIMAB
     Indication: Epstein-Barr virus infection reactivation
  12. SIROLIMUS [Suspect]
     Active Substance: SIROLIMUS
     Indication: Anamnestic reaction
     Dosage: UNK
     Route: 065
     Dates: start: 201807, end: 202002

REACTIONS (21)
  - Autoimmune pancytopenia [Unknown]
  - Immunodeficiency [Unknown]
  - Condition aggravated [Unknown]
  - Hepatosplenomegaly [Unknown]
  - Pleural effusion [Unknown]
  - Histology abnormal [Unknown]
  - Sepsis [Unknown]
  - Ascites [Unknown]
  - Diarrhoea haemorrhagic [Unknown]
  - Intestinal perforation [Unknown]
  - Clostridium difficile colitis [Unknown]
  - Gastrointestinal haemorrhage [Unknown]
  - Myelosuppression [Unknown]
  - Osteonecrosis [Unknown]
  - Lymphoproliferative disorder [Unknown]
  - Product use in unapproved indication [Unknown]
  - Transplant failure [Unknown]
  - Off label use [Unknown]
  - Hepatic enzyme increased [Unknown]
  - Pyrexia [Unknown]
  - Dehydration [Unknown]

NARRATIVE: CASE EVENT DATE: 20200101
